FAERS Safety Report 6168694-0 (Version None)
Quarter: 2009Q2

REPORT INFORMATION
  Report Type: 
  Country: None (occurrence: None)
  Receive Date: 20090427
  Receipt Date: 20090415
  Transmission Date: 20091009
  Serious: Yes (Hospitalization, Other)
  Sender: FDA-Public Use
  Company Number: TW-PFIZER INC-2009199054

PATIENT

DRUGS (4)
  1. DILANTIN [Suspect]
     Indication: CONVULSION
     Route: 048
     Dates: start: 20090311, end: 20090401
  2. NEURONTIN [Suspect]
     Indication: CONVULSION
     Route: 048
     Dates: start: 20090408, end: 20090413
  3. HYDROXYCHLOROQUINE [Concomitant]
  4. ASPIRIN [Concomitant]
     Dates: start: 20080107, end: 20090413

REACTIONS (6)
  - ANTICONVULSANT DRUG LEVEL ABNORMAL [None]
  - DRUG HYPERSENSITIVITY [None]
  - FACE OEDEMA [None]
  - INSOMNIA [None]
  - RASH MACULAR [None]
  - RASH MORBILLIFORM [None]
